FAERS Safety Report 9772710 (Version 2)
Quarter: 2013Q4

REPORT INFORMATION
  Report Type: Spontaneous
  Country: GR (occurrence: GR)
  Receive Date: 20131219
  Receipt Date: 20131226
  Transmission Date: 20140711
  Serious: Yes (Other)
  Sender: FDA-Public Use
  Company Number: GR-PFIZER INC-2013362413

PATIENT
  Age: 58 Year
  Sex: Female

DRUGS (4)
  1. METHYLPREDNISOLONE [Suspect]
     Indication: PARANEOPLASTIC PEMPHIGUS
     Dosage: 48 MG, DAILY
  2. FLUCONAZOLE [Suspect]
     Indication: STOMATITIS
     Dosage: UNK
  3. CIPROFLOXACIN [Suspect]
     Indication: STOMATITIS
     Dosage: UNK
  4. VALACICLOVIR [Suspect]
     Indication: STOMATITIS
     Dosage: UNK

REACTIONS (2)
  - Cushing^s syndrome [Unknown]
  - Drug ineffective [Unknown]
